FAERS Safety Report 10207008 (Version 1)
Quarter: 2014Q2

REPORT INFORMATION
  Report Type: Spontaneous
  Country: US (occurrence: US)
  Receive Date: 20140530
  Receipt Date: 20140530
  Transmission Date: 20141212
  Serious: No
  Sender: FDA-Public Use
  Company Number: US-VIIV HEALTHCARE LIMITED-A1039333A

PATIENT
  Age: 1 Day
  Sex: Female

DRUGS (8)
  1. RETROVIR [Suspect]
     Indication: PROPHYLAXIS
     Dosage: 12.2MG SEE DOSAGE TEXT
     Route: 048
     Dates: start: 20130826, end: 20130826
  2. NO CONCURRENT MEDICATION [Concomitant]
  3. ERYTHROMYCIN [Concomitant]
     Route: 047
  4. HEPATITIS B VACCINE [Concomitant]
  5. PHYTONADIONE [Concomitant]
  6. GENTIAN VIOLET [Concomitant]
  7. PROFLAVINE [Concomitant]
  8. BRILLIANT GREEN [Concomitant]

REACTIONS (1)
  - Drug administration error [Unknown]
